FAERS Safety Report 6204616-1 (Version None)
Quarter: 2009Q2

REPORT INFORMATION
  Report Type: 
  Country: None (occurrence: None)
  Receive Date: 20090527
  Receipt Date: 20090515
  Transmission Date: 20091009
  Serious: Yes (Other)
  Sender: FDA-Public Use
  Company Number: CH-PFIZER INC-2009214222

PATIENT

DRUGS (5)
  1. SERTRALINE HCL [Suspect]
     Indication: DEPRESSION
     Dosage: 50 MG, 1X/DAY
     Route: 048
     Dates: start: 20090203, end: 20090430
  2. XANAX [Concomitant]
     Indication: DEPRESSION
     Dosage: 5 MG, 1X/DAY
     Route: 048
     Dates: start: 20060101
  3. TRITTICO [Concomitant]
     Indication: DEPRESSION
     Dosage: 150 MG, 1X/DAY
     Route: 048
     Dates: start: 20071101
  4. TRITTICO [Concomitant]
     Dosage: 200 MG, 1X/DAY
     Route: 048
  5. TRITTICO [Concomitant]
     Dosage: 150 MG, 1X/DAY
     Route: 048

REACTIONS (2)
  - DRY MOUTH [None]
  - DYSGEUSIA [None]
